FAERS Safety Report 7134420-1 (Version None)
Quarter: 2010Q4

REPORT INFORMATION
  Report Type: 
  Country: None (occurrence: None)
  Receive Date: 20101203
  Receipt Date: 20101129
  Transmission Date: 20110411
  Serious: Yes (Life-Threatening)
  Sender: FDA-Public Use
  Company Number: PHHY2010US63874

PATIENT
  Sex: Female

DRUGS (1)
  1. FORADIL [Suspect]
     Indication: ASTHMA
     Dosage: 1 CAPSULE TWICE A DAILY
     Dates: start: 20070101

REACTIONS (2)
  - FEELING ABNORMAL [None]
  - MASS [None]
